FAERS Safety Report 4572420-6 (Version None)
Quarter: 2005Q1

REPORT INFORMATION
  Report Type: 
  Country: None (occurrence: None)
  Receive Date: 20050207
  Receipt Date: 20050124
  Transmission Date: 20050727
  Serious: Yes (Life-Threatening)
  Sender: FDA-Public Use
  Company Number: ES-GLAXOSMITHKLINE-B0365423A

PATIENT
  Age: 41 Year
  Sex: Female
  Weight: 92 kg

DRUGS (4)
  1. GW433908 [Suspect]
     Indication: HIV INFECTION
     Dosage: 700MG TWICE PER DAY
     Route: 048
     Dates: start: 20050110, end: 20050120
  2. RITONAVIR [Suspect]
     Indication: HIV INFECTION
     Dosage: 100MG TWICE PER DAY
     Route: 048
     Dates: start: 20050110, end: 20050120
  3. DIDANOSINE [Suspect]
     Indication: HIV INFECTION
  4. TENOFOVIR [Suspect]
     Indication: HIV INFECTION

REACTIONS (2)
  - ANGIONEUROTIC OEDEMA [None]
  - RASH [None]
